FAERS Safety Report 10089021 (Version 1)
Quarter: 2014Q2

REPORT INFORMATION
  Report Type: Spontaneous
  Country: US (occurrence: None)
  Receive Date: 20140418
  Receipt Date: 20140418
  Transmission Date: 20141212
  Serious: No
  Sender: FDA-Public Use
  Company Number: None

PATIENT
  Age: 84 Year
  Sex: Female
  Weight: 57.61 kg

DRUGS (6)
  1. INVEGA SUSTENNA [Suspect]
     Indication: SCHIZOPHRENIA
     Dosage: INITIATION DOSE 234MG THEN TO 156, THEN TO 117MG?1 X PER MONTH?INJECTION
     Dates: start: 20140221, end: 20140329
  2. BENZOTROPINE [Concomitant]
  3. ASPIRIN [Concomitant]
  4. MILK OF MAGNESIUM [Concomitant]
  5. DOCUSATE [Concomitant]
  6. FONDAPRINUX [Concomitant]

REACTIONS (10)
  - Lethargy [None]
  - Hallucination [None]
  - Mastication disorder [None]
  - Urinary incontinence [None]
  - Respiratory disorder [None]
  - Speech disorder [None]
  - VIIth nerve paralysis [None]
  - Altered state of consciousness [None]
  - Grip strength decreased [None]
  - Hemiplegia [None]
